FAERS Safety Report 4771096-2 (Version None)
Quarter: 2005Q3

REPORT INFORMATION
  Report Type: 
  Country: None (occurrence: None)
  Receive Date: 20050914
  Receipt Date: 20050902
  Transmission Date: 20060218
  Serious: Yes (Other)
  Sender: FDA-Public Use
  Company Number: SP00443

PATIENT
  Age: 50 Year
  Sex: Male
  Weight: 97.5234 kg

DRUGS (7)
  1. XIFAXAN [Suspect]
     Indication: GASTROINTESTINAL DISORDER
     Dosage: 200 MG/TID, ORAL
     Route: 048
     Dates: start: 20050519, end: 20050519
  2. XIFAXAN [Suspect]
     Indication: OVERGROWTH BACTERIAL
     Dosage: 200 MG/TID, ORAL
     Route: 048
     Dates: start: 20050519, end: 20050519
  3. ALLERGY INJECTION [Concomitant]
  4. NORVASC [Concomitant]
  5. HYZAAR [Concomitant]
  6. SINGULAIR [Concomitant]
  7. NEXIUM [Concomitant]

REACTIONS (2)
  - OEDEMA PERIPHERAL [None]
  - OLIGURIA [None]
